FAERS Safety Report 4456766-8 (Version None)
Quarter: 2004Q3

REPORT INFORMATION
  Report Type: 
  Country: None (occurrence: None)
  Receive Date: 20040921
  Receipt Date: 20040915
  Transmission Date: 20050211
  Serious: Yes (Other)
  Sender: FDA-Public Use
  Company Number: 002708

PATIENT
  Age: 32 Year
  Sex: Female

DRUGS (4)
  1. MEDROXYPROGESTERONE ACETATE [Suspect]
     Dates: start: 20010409, end: 20020726
  2. PROMETRIUM [Suspect]
     Dates: start: 20001201, end: 20001215
  3. PREMPHASE (PREMARIN;CYCRIN 14/14) [Suspect]
     Dates: start: 20010201, end: 20010409
  4. PREMARIN [Suspect]
     Dates: start: 20010425, end: 20020807

REACTIONS (1)
  - BREAST CANCER FEMALE [None]
